FAERS Safety Report 7423958-5 (Version None)
Quarter: 2011Q2

REPORT INFORMATION
  Report Type: 
  Country: None (occurrence: None)
  Receive Date: 20110419
  Receipt Date: 20110411
  Transmission Date: 20111010
  Serious: Yes (Disabling, Other)
  Sender: FDA-Public Use
  Company Number: B0575072A

PATIENT
  Sex: Male
  Weight: 53 kg

DRUGS (7)
  1. DICHLOTRIDE [Concomitant]
     Indication: HYPERTENSION
     Dosage: 50MG PER DAY
     Route: 048
  2. ADALAT [Concomitant]
     Indication: HYPERTENSION
     Dosage: 40MG PER DAY
     Route: 048
  3. ACECOL [Concomitant]
     Indication: HYPERTENSION
     Dosage: 2MG PER DAY
     Route: 048
  4. MUCOSTA [Concomitant]
     Indication: GASTRIC ULCER
     Route: 048
     Dates: start: 20090504, end: 20090512
  5. FONDAPARINUX [Suspect]
     Indication: THROMBOSIS PROPHYLAXIS
     Dosage: 1.5MG PER DAY
     Route: 058
     Dates: start: 20090509, end: 20090515
  6. LOXONIN [Concomitant]
     Dosage: 180MG PER DAY
     Route: 048
     Dates: start: 20090504, end: 20090512
  7. ETODOLAC [Concomitant]
     Route: 048
     Dates: start: 20090513, end: 20090517

REACTIONS (15)
  - ASTHENIA [None]
  - ANORECTAL DISORDER [None]
  - BLADDER DISORDER [None]
  - DYSURIA [None]
  - PARAPARESIS [None]
  - PARALYSIS [None]
  - MOTOR DYSFUNCTION [None]
  - BLADDER DYSFUNCTION [None]
  - DYSCHEZIA [None]
  - GASTROINTESTINAL DISORDER [None]
  - ARTERIAL HAEMORRHAGE [None]
  - MUSCULAR WEAKNESS [None]
  - SKIN LESION [None]
  - SUBARACHNOID HAEMORRHAGE [None]
  - HAEMATOMA [None]
